FAERS Safety Report 5512619-5 (Version None)
Quarter: 2007Q4

REPORT INFORMATION
  Report Type: 
  Country: None (occurrence: None)
  Receive Date: 20071108
  Receipt Date: 20071108
  Transmission Date: 20080405
  Serious: Yes (Other)
  Sender: FDA-Public Use
  Company Number: None

PATIENT
  Age: 80 Year
  Sex: Male
  Weight: 73.8 kg

DRUGS (1)
  1. AMLODIPINE [Suspect]

REACTIONS (1)
  - CHEST PAIN [None]
